FAERS Safety Report 12330879 (Version 1)
Quarter: 2016Q2

REPORT INFORMATION
  Report Type: Spontaneous
  Country: US (occurrence: None)
  Receive Date: 20160503
  Receipt Date: 20160503
  Transmission Date: 20160815
  Serious: No
  Sender: FDA-Public Use
  Company Number: None

PATIENT
  Age: 76 Year
  Sex: Female

DRUGS (8)
  1. CALCIUM [Concomitant]
     Active Substance: CALCIUM
  2. CENTRUM [Concomitant]
     Active Substance: VITAMINS
  3. DILTIAZEM [Concomitant]
     Active Substance: DILTIAZEM
  4. HCTZ [Concomitant]
     Active Substance: HYDROCHLOROTHIAZIDE
  5. LETROZOLE. [Concomitant]
     Active Substance: LETROZOLE
  6. ASPIRIN. [Concomitant]
     Active Substance: ASPIRIN
  7. IBRANCE [Suspect]
     Active Substance: PALBOCICLIB
     Indication: BREAST CANCER
     Dosage: IBRANCE 125 MG 1 CAPSULE EVERYDAY ORAL
     Route: 048
     Dates: start: 20160210
  8. METOPROLOL TAR [Concomitant]
     Active Substance: METOPROLOL TARTRATE

REACTIONS (2)
  - Blood test abnormal [None]
  - Drug ineffective [None]

NARRATIVE: CASE EVENT DATE: 20160421
